FAERS Safety Report 10258711 (Version 2)
Quarter: 2014Q2

REPORT INFORMATION
  Report Type: Spontaneous
  Country: US (occurrence: US)
  Receive Date: 20140625
  Receipt Date: 20140625
  Transmission Date: 20141212
  Serious: No
  Sender: FDA-Public Use
  Company Number: US-ASTELLAS-2008US000273

PATIENT
  Sex: Male

DRUGS (6)
  1. VESICARE [Suspect]
     Indication: BLADDER DISORDER
     Route: 048
     Dates: start: 2007
  2. VESICARE [Suspect]
     Route: 048
  3. NORVASC [Concomitant]
     Indication: HYPERTENSION
     Route: 048
  4. PLAVIX [Concomitant]
     Indication: ANTICOAGULANT THERAPY
     Route: 048
  5. ZETIA [Concomitant]
     Indication: BLOOD CHOLESTEROL INCREASED
     Route: 048
  6. TRAMADOL [Concomitant]
     Indication: PRODUCT USED FOR UNKNOWN INDICATION
     Route: 048

REACTIONS (4)
  - Drug ineffective [Unknown]
  - Bladder discomfort [Recovered/Resolved]
  - Urinary hesitation [Recovered/Resolved]
  - Dysuria [Unknown]
